FAERS Safety Report 22180677 (Version 2)
Quarter: 2023Q2

REPORT INFORMATION
  Report Type: Spontaneous
  Country: US (occurrence: US)
  Receive Date: 20230406
  Receipt Date: 20230424
  Transmission Date: 20230721
  Serious: Yes (Other)
  Sender: FDA-Public Use
  Company Number: US-COOPERSURGICAL, INC.-US-2023CPS001012

PATIENT
  Age: 24 Year
  Sex: Female
  Weight: 69.841 kg

DRUGS (1)
  1. PARAGARD T 380A [Suspect]
     Active Substance: COPPER
     Indication: Contraception
     Dosage: UNK
     Route: 015
     Dates: start: 20180515, end: 2023

REACTIONS (5)
  - Ovarian cyst [Recovering/Resolving]
  - Device dislocation [Recovered/Resolved]
  - Dyspareunia [Recovering/Resolving]
  - Pelvic pain [Recovering/Resolving]
  - Intermenstrual bleeding [Recovering/Resolving]

NARRATIVE: CASE EVENT DATE: 20230310
